FAERS Safety Report 20770538 (Version 2)
Quarter: 2023Q1

REPORT INFORMATION
  Report Type: Spontaneous
  Country: AT (occurrence: AT)
  Receive Date: 20220429
  Receipt Date: 20230117
  Transmission Date: 20230418
  Serious: Yes (Other)
  Sender: FDA-Public Use
  Company Number: None

PATIENT
  Age: 50 Year
  Sex: Female

DRUGS (2)
  1. ARIPIPRAZOLE [Interacting]
     Active Substance: ARIPIPRAZOLE
     Indication: Product used for unknown indication
     Dosage: UNK
     Route: 065
  2. JANSSEN COVID-19 VACCINE [Interacting]
     Active Substance: AD26.COV2.S
     Indication: COVID-19 immunisation
     Dosage: 1DOSAGEFORM,TOTAL (SECOND PARTIAL VACCINATION
     Route: 065
     Dates: start: 20220114

REACTIONS (13)
  - Eustachian tube disorder [Recovered/Resolved]
  - Condition aggravated [Recovered/Resolved]
  - Palpitations [Recovered/Resolved]
  - Narcolepsy [Recovered/Resolved]
  - Rapid eye movements sleep abnormal [Recovered/Resolved]
  - Asthenia [Recovered/Resolved]
  - Nervous system disorder [Recovered/Resolved]
  - Therapeutic response decreased [Recovered/Resolved]
  - Dizziness [Recovered/Resolved]
  - Drug interaction [Unknown]
  - Migraine [Recovered/Resolved]
  - Pyrexia [Recovered/Resolved]
  - Nausea [Recovered/Resolved]

NARRATIVE: CASE EVENT DATE: 20220101
